FAERS Safety Report 9307521 (Version 3)
Quarter: 2014Q2

REPORT INFORMATION
  Report Type: Spontaneous
  Country: US (occurrence: US)
  Receive Date: 20130524
  Receipt Date: 20140522
  Transmission Date: 20141212
  Serious: Yes (Other)
  Sender: FDA-Public Use
  Company Number: US-BAYER-2013-062449

PATIENT
  Age: 30 Year
  Sex: Female
  Weight: 61.22 kg

DRUGS (7)
  1. MIRENA [Suspect]
     Indication: CONTRACEPTION
     Dosage: 20 MCG/24HR, CONT
     Route: 015
     Dates: start: 20100804, end: 20110505
  2. MIRENA [Suspect]
     Indication: CONTRACEPTION
     Dosage: 20 MCG/24HR, CONT
     Route: 015
     Dates: start: 200203, end: 200703
  3. MIRENA [Suspect]
     Indication: CONTRACEPTION
     Dosage: 20 MCG/24HR, CONT
     Route: 015
     Dates: start: 200705, end: 200903
  4. MULTIVITAMIN [Concomitant]
  5. TYLENOL [PARACETAMOL] [Concomitant]
  6. VICODIN [Concomitant]
     Dosage: 5/500 MG
  7. CARAFATE [Concomitant]
     Dosage: 1 G, UNK

REACTIONS (16)
  - Uterine perforation [None]
  - Genital haemorrhage [None]
  - Medical device complication [None]
  - Ovarian cyst [None]
  - Pelvic pain [None]
  - Abdominal pain [None]
  - Device physical property issue [None]
  - Emotional distress [None]
  - Pain [None]
  - Injury [None]
  - Internal injury [None]
  - Medical device discomfort [None]
  - Depression [None]
  - Anxiety [None]
  - Migraine [None]
  - Fear [None]
